FAERS Safety Report 21317299 (Version 3)
Quarter: 2025Q3

REPORT INFORMATION
  Report Type: Spontaneous
  Country: US (occurrence: US)
  Receive Date: 20220911
  Receipt Date: 20250724
  Transmission Date: 20251021
  Serious: No
  Sender: SANOFI AVENTIS
  Company Number: US-SA-SAC20220824000147

PATIENT
  Age: 44 Year
  Sex: Male

DRUGS (3)
  1. DUPIXENT [Suspect]
     Active Substance: DUPILUMAB
     Indication: Dermatitis atopic
     Dosage: 300 MG, QOW
     Route: 058
     Dates: start: 20210212
  2. ALBUTEROL SULFATE [Concomitant]
     Active Substance: ALBUTEROL SULFATE
  3. MOMETASONE [Concomitant]
     Active Substance: MOMETASONE

REACTIONS (6)
  - Sleep disorder [Unknown]
  - Dermatitis atopic [Not Recovered/Not Resolved]
  - Rash [Not Recovered/Not Resolved]
  - Discomfort [Not Recovered/Not Resolved]
  - Therapeutic response decreased [Unknown]
  - Product storage error [Unknown]

NARRATIVE: CASE EVENT DATE: 20250717
